FAERS Safety Report 11803984 (Version 1)
Quarter: 2015Q4

REPORT INFORMATION
  Report Type: Spontaneous
  Country: US (occurrence: US)
  Receive Date: 20151204
  Receipt Date: 20151204
  Transmission Date: 20160305
  Serious: Yes (Other)
  Sender: FDA-Public Use
  Company Number: US-ASTRAZENECA-2015SF19486

PATIENT
  Sex: Female
  Weight: 68 kg

DRUGS (2)
  1. PRILOSEC [Suspect]
     Active Substance: OMEPRAZOLE MAGNESIUM
     Indication: GASTROOESOPHAGEAL REFLUX DISEASE
     Route: 048
  2. NEXIUM [Suspect]
     Active Substance: ESOMEPRAZOLE MAGNESIUM
     Indication: GASTROOESOPHAGEAL REFLUX DISEASE
     Route: 048

REACTIONS (9)
  - Drug hypersensitivity [Unknown]
  - Chest wall cyst [Unknown]
  - Chronic obstructive pulmonary disease [Unknown]
  - Vomiting [Unknown]
  - Coronary artery disease [Unknown]
  - Headache [Unknown]
  - Retching [Unknown]
  - Drug ineffective [Unknown]
  - Asthma [Unknown]
